FAERS Safety Report 14476968 (Version 1)
Quarter: 2018Q1

REPORT INFORMATION
  Report Type: Report from Study
  Country: US (occurrence: US)
  Receive Date: 20180201
  Receipt Date: 20180201
  Transmission Date: 20180509
  Serious: No
  Sender: FDA-Public Use
  Company Number: US-EXELIXIS-CABO-17009584

PATIENT
  Age: 70 Year
  Sex: Male

DRUGS (9)
  1. BACTRIM [Concomitant]
     Active Substance: SULFAMETHOXAZOLE\TRIMETHOPRIM
  2. CABOMETYX [Suspect]
     Active Substance: CABOZANTINIB S-MALATE
     Indication: RENAL CANCER
     Dosage: 60 MG, QD
     Route: 048
     Dates: start: 20170303, end: 2017
  3. CABOMETYX [Suspect]
     Active Substance: CABOZANTINIB S-MALATE
     Dosage: UNK
     Dates: start: 2017
  4. PANCRELIPASE. [Concomitant]
     Active Substance: PANCRELIPASE
  5. RANITIDINE. [Concomitant]
     Active Substance: RANITIDINE
  6. HYDROCHLOROTHIAZIDE. [Concomitant]
     Active Substance: HYDROCHLOROTHIAZIDE
  7. NIFEDICAL XL [Concomitant]
     Active Substance: NIFEDIPINE
  8. LYRICA [Concomitant]
     Active Substance: PREGABALIN
  9. NORCO [Concomitant]
     Active Substance: ACETAMINOPHEN\HYDROCODONE BITARTRATE

REACTIONS (3)
  - Abdominal pain [Recovering/Resolving]
  - Skin fissures [Not Recovered/Not Resolved]
  - Hyperthyroidism [Unknown]

NARRATIVE: CASE EVENT DATE: 201705
